FAERS Safety Report 18265462 (Version 1)
Quarter: 2020Q3

REPORT INFORMATION
  Report Type: Other
  Country: US (occurrence: US)
  Receive Date: 20200914
  Receipt Date: 20200914
  Transmission Date: 20201103
  Serious: No
  Sender: FDA-Public Use
  Company Number: US-LEADIANT BIOSCIENCES INC-2020STPI000272

PATIENT
  Sex: Male

DRUGS (6)
  1. FISH OIL [Concomitant]
     Active Substance: FISH OIL
  2. LORAZEPAM. [Concomitant]
     Active Substance: LORAZEPAM
  3. MULTIVITAMINUM [Concomitant]
     Active Substance: VITAMINS
  4. MATULANE [Suspect]
     Active Substance: PROCARBAZINE HYDROCHLORIDE
     Indication: BRAIN NEOPLASM MALIGNANT
     Dosage: 100 MG, ON DAYS 8 TO 12 OF EACH 42 DAYS CYCLE
     Dates: start: 20200514
  5. SIMVASTATIN. [Concomitant]
     Active Substance: SIMVASTATIN
  6. TEGRETOL [Concomitant]
     Active Substance: CARBAMAZEPINE

REACTIONS (2)
  - Dehydration [Unknown]
  - Diarrhoea [Unknown]
